FAERS Safety Report 8770798 (Version 1)
Quarter: 2012Q4

REPORT INFORMATION
  Report Type: 
  Country: US (occurrence: US)
  Receive Date: 20120906
  Receipt Date: 20120906
  Transmission Date: 20130627
  Serious: Yes (Other)
  Sender: FDA-Public Use
  Company Number: US-PFIZER INC-2012216460

PATIENT
  Age: 68 Year
  Sex: Male
  Weight: 132 kg

DRUGS (1)
  1. ADVIL [Suspect]
     Indication: GOUT
     Dosage: 200 mg, 2x/day
     Dates: start: 201204, end: 20120902

REACTIONS (1)
  - Haemorrhage [Not Recovered/Not Resolved]
